FAERS Safety Report 25091925 (Version 1)
Quarter: 2025Q1

REPORT INFORMATION
  Report Type: Report from Study
  Country: JP (occurrence: JP)
  Receive Date: 20250318
  Receipt Date: 20250318
  Transmission Date: 20250409
  Serious: Yes (Other)
  Sender: TAKEDA
  Company Number: JP-TAKEDA-2022TJP063297

PATIENT
  Age: 4 Decade
  Sex: Male

DRUGS (1)
  1. VONICOG ALFA [Suspect]
     Active Substance: VONICOG ALFA
     Indication: Haemorrhage prophylaxis
     Dosage: 1300 INTERNATIONAL UNIT, QD
     Dates: start: 20220630, end: 20220703

REACTIONS (2)
  - Drug ineffective [Unknown]
  - No adverse event [Unknown]
